FAERS Safety Report 10015185 (Version 1)
Quarter: 2014Q1

REPORT INFORMATION
  Report Type: Spontaneous
  Country: CH (occurrence: CH)
  Receive Date: 20140317
  Receipt Date: 20140317
  Transmission Date: 20141002
  Serious: Yes (Other)
  Sender: FDA-Public Use
  Company Number: CH-JNJFOC-20140307473

PATIENT
  Age: 47 Year
  Sex: Male

DRUGS (5)
  1. REMICADE [Suspect]
     Indication: SARCOIDOSIS
     Route: 042
     Dates: start: 20130611
  2. INDERAL [Concomitant]
     Route: 048
  3. POTASSIUM [Concomitant]
     Dosage: ONE DF
     Route: 048
  4. SALMETEROL XINAFOATE [Concomitant]
     Dosage: ONE DF
     Route: 055
  5. PANTAZOL [Concomitant]
     Route: 048

REACTIONS (2)
  - Keratitis [Recovered/Resolved with Sequelae]
  - Off label use [Unknown]
